FAERS Safety Report 4721312-8 (Version None)
Quarter: 2005Q3

REPORT INFORMATION
  Report Type: 
  Country: None (occurrence: None)
  Receive Date: 20050721
  Receipt Date: 20040614
  Transmission Date: 20060218
  Serious: No
  Sender: FDA-Public Use
  Company Number: US-BRISTOL-MYERS SQUIBB COMPANY-12614129

PATIENT

DRUGS (1)
  1. COUMADIN [Suspect]

REACTIONS (3)
  - DRUG LEVEL BELOW THERAPEUTIC [None]
  - INFLAMMATION [None]
  - VENOUS INSUFFICIENCY [None]
